FAERS Safety Report 20476515 (Version 2)
Quarter: 2022Q1

REPORT INFORMATION
  Report Type: Spontaneous
  Country: US (occurrence: US)
  Receive Date: 20220215
  Receipt Date: 20220221
  Transmission Date: 20220423
  Serious: Yes (Life-Threatening, Other)
  Sender: FDA-Public Use
  Company Number: US-NOVARTISPH-NVSC2022US027686

PATIENT
  Sex: Female

DRUGS (4)
  1. PIQRAY [Suspect]
     Active Substance: ALPELISIB
     Indication: Product used for unknown indication
     Dosage: UNK, (200)
     Route: 065
     Dates: start: 20210821, end: 20211027
  2. PIQRAY [Suspect]
     Active Substance: ALPELISIB
     Dosage: UNK (150)
     Route: 065
     Dates: start: 20211207
  3. PIQRAY [Suspect]
     Active Substance: ALPELISIB
     Dosage: 200 MG, QD
     Route: 065
  4. PIQRAY [Suspect]
     Active Substance: ALPELISIB
     Dosage: 150 MG, QD (BY CVS RX#21157414 STOPPED 3DAYS AGO ON FEBRUARY 13)
     Route: 065

REACTIONS (18)
  - Breast discharge [Unknown]
  - Cataract [Unknown]
  - Fungating wound [Unknown]
  - Skin cancer [Unknown]
  - Myopia [Unknown]
  - Vision blurred [Unknown]
  - Quality of life decreased [Unknown]
  - Pain in extremity [Unknown]
  - Breast pain [Unknown]
  - Product dose omission issue [Unknown]
  - Anger [Unknown]
  - Hypertrophic osteoarthropathy [Unknown]
  - Weight decreased [Unknown]
  - Decreased appetite [Unknown]
  - Blood glucose increased [Unknown]
  - Pruritus [Unknown]
  - Rash erythematous [Unknown]
  - Asthenia [Unknown]
